FAERS Safety Report 4795320-5 (Version None)
Quarter: 2005Q4

REPORT INFORMATION
  Report Type: 
  Country: None (occurrence: None)
  Receive Date: 20051012
  Receipt Date: 20050930
  Transmission Date: 20060501
  Serious: Yes (Hospitalization)
  Sender: FDA-Public Use
  Company Number: FR-GLAXOSMITHKLINE-B0396378A

PATIENT
  Age: 27 Year
  Sex: Male

DRUGS (1)
  1. LAMICTAL [Suspect]
     Indication: EPILEPSY
     Route: 048
     Dates: start: 20050506, end: 20050711

REACTIONS (25)
  - ALPHA 2 GLOBULIN INCREASED [None]
  - CHEILITIS [None]
  - CONJUNCTIVAL OEDEMA [None]
  - CONJUNCTIVITIS [None]
  - DEPRESSED LEVEL OF CONSCIOUSNESS [None]
  - DERMATITIS BULLOUS [None]
  - DYSPHAGIA [None]
  - ERYTHEMA [None]
  - GENERAL PHYSICAL HEALTH DETERIORATION [None]
  - GENITAL EROSION [None]
  - HYPERTONIA [None]
  - HYPOALBUMINAEMIA [None]
  - IMMUNOGLOBULINS INCREASED [None]
  - LARYNGEAL ERYTHEMA [None]
  - LOSS OF CONSCIOUSNESS [None]
  - MUCOSAL EROSION [None]
  - NIKOLSKY'S SIGN [None]
  - ODYNOPHAGIA [None]
  - ORAL MUCOSAL PETECHIAE [None]
  - PHARYNGEAL ULCERATION [None]
  - PYREXIA [None]
  - SKIN DISORDER [None]
  - STEVENS-JOHNSON SYNDROME [None]
  - TOXIC SKIN ERUPTION [None]
  - ULCERATIVE KERATITIS [None]
